FAERS Safety Report 26022724 (Version 1)
Quarter: 2025Q4

REPORT INFORMATION
  Report Type: Spontaneous
  Country: US (occurrence: US)
  Receive Date: 20251110
  Receipt Date: 20251110
  Transmission Date: 20260118
  Serious: No
  Sender: TAIHO ONCOLOGY INC
  Company Number: US-TAIHOP-2025-011527

PATIENT
  Sex: Female

DRUGS (1)
  1. LYTGOBI [Suspect]
     Active Substance: FUTIBATINIB
     Indication: Product used for unknown indication
     Dosage: DOSE, FREQUENCY AND FORM STRENGTH UNKNOWN
     Route: 048

REACTIONS (13)
  - Blood phosphorus increased [Unknown]
  - Dry eye [Unknown]
  - Nasal dryness [Unknown]
  - Dry mouth [Unknown]
  - Stomatitis [Unknown]
  - Arthralgia [Unknown]
  - Myalgia [Unknown]
  - Alopecia [Unknown]
  - Palmar-plantar erythrodysaesthesia syndrome [Unknown]
  - Taste disorder [Unknown]
  - Onycholysis [Unknown]
  - Onychomadesis [Unknown]
  - Nail deformation [Unknown]
